FAERS Safety Report 4282404-3 (Version None)
Quarter: 2004Q1

REPORT INFORMATION
  Report Type: 
  Country: None (occurrence: None)
  Receive Date: 20040116
  Receipt Date: 20030408
  Transmission Date: 20041129
  Serious: Yes (Hospitalization)
  Sender: FDA-Public Use
  Company Number: 03P-163-0216471-00

PATIENT
  Sex: Female

DRUGS (1)
  1. MERIDIA [Suspect]
     Indication: WEIGHT CONTROL
     Dates: start: 20001001, end: 20001201

REACTIONS (3)
  - BLOOD PRESSURE INCREASED [None]
  - MIGRAINE [None]
  - MYOCARDIAL INFARCTION [None]
